FAERS Safety Report 5521678-5 (Version None)
Quarter: 2007Q4

REPORT INFORMATION
  Report Type: 
  Country: None (occurrence: None)
  Receive Date: 20071120
  Receipt Date: 20071112
  Transmission Date: 20080405
  Serious: Yes (Hospitalization, Other)
  Sender: FDA-Public Use
  Company Number: PHBS2007BR18896

PATIENT
  Age: 63 Year
  Sex: Female
  Weight: 70 kg

DRUGS (2)
  1. DIOVAN AMLO FIX [Suspect]
     Indication: HYPERTENSION
     Dosage: VALS 320 / AMLO 10 MG/DAY
     Route: 048
  2. HYGROTON [Concomitant]
     Indication: HYPERTENSION
     Dosage: 12.5 MG/DAY
     Route: 048

REACTIONS (4)
  - FALL [None]
  - FEMUR FRACTURE [None]
  - JOINT SWELLING [None]
  - LIMB OPERATION [None]
